FAERS Safety Report 7819579-2 (Version None)
Quarter: 2011Q4

REPORT INFORMATION
  Report Type: 
  Country: None (occurrence: None)
  Receive Date: 20111018
  Receipt Date: 20111007
  Transmission Date: 20120403
  Serious: No
  Sender: FDA-Public Use
  Company Number: GB-SANOFI-AVENTIS-2011SA012758

PATIENT
  Age: 28 Year
  Sex: Female

DRUGS (2)
  1. ARAVA [Suspect]
     Indication: RHEUMATOID ARTHRITIS
     Route: 048
     Dates: start: 20101101, end: 20101201
  2. CELECOXIB [Concomitant]
     Indication: RHEUMATOID ARTHRITIS

REACTIONS (1)
  - MATERNAL EXPOSURE DURING PREGNANCY [None]
